FAERS Safety Report 23668540 (Version 3)
Quarter: 2024Q2

REPORT INFORMATION
  Report Type: Spontaneous
  Country: JP (occurrence: JP)
  Receive Date: 20240325
  Receipt Date: 20240422
  Transmission Date: 20240716
  Serious: Yes (Death, Hospitalization, Other)
  Sender: FDA-Public Use
  Company Number: None

PATIENT
  Age: 68 Year
  Sex: Female

DRUGS (1)
  1. CAPECITABINE [Suspect]
     Active Substance: CAPECITABINE
     Indication: Triple negative breast cancer
     Dosage: STARTED IN NOVEMBER; 3000 MG/BODY
     Route: 048

REACTIONS (7)
  - Pulmonary tumour thrombotic microangiopathy [Fatal]
  - Acute respiratory failure [Fatal]
  - Disseminated intravascular coagulation [Unknown]
  - Interstitial lung disease [Unknown]
  - Movement disorder [Unknown]
  - Coagulopathy [Unknown]
  - Inflammation [Unknown]
